FAERS Safety Report 20414097 (Version 2)
Quarter: 2022Q1

REPORT INFORMATION
  Report Type: Spontaneous
  Country: US (occurrence: US)
  Receive Date: 20220201
  Receipt Date: 20220208
  Transmission Date: 20220423
  Serious: Yes (Death, Other)
  Sender: FDA-Public Use
  Company Number: US-PURDUE-USA-2020-0272801

PATIENT
  Sex: Male

DRUGS (1)
  1. OXYCONTIN [Suspect]
     Active Substance: OXYCODONE HYDROCHLORIDE
     Indication: Product used for unknown indication
     Dosage: UNKNOWN DOSE
     Route: 048
     Dates: start: 1998

REACTIONS (3)
  - Drug dependence [Fatal]
  - Mental disorder [Unknown]
  - Physical abuse [Unknown]

NARRATIVE: CASE EVENT DATE: 20190101
